FAERS Safety Report 10385000 (Version 1)
Quarter: 2014Q1

REPORT INFORMATION
  Report Type: Spontaneous
  Country: US (occurrence: None)
  Receive Date: 20140306
  Receipt Date: 20140306
  Transmission Date: 20141002
  Serious: No
  Sender: FDA-Public Use
  Company Number: 163-21880-13034319

PATIENT
  Age: 72 Year
  Sex: Male
  Weight: 97.07 kg

DRUGS (10)
  1. REVLIMID (LENALIDOMIDE) (15 MILLIGRAM, CAPSULES) [Suspect]
     Indication: PLASMA CELL MYELOMA
     Route: 048
     Dates: start: 201110
  2. ADULT LOW DOSE ASPIRIN (ACETYLSALICYLIC ACID) [Concomitant]
  3. CALCIUM 500 (CALCIUM) [Concomitant]
  4. CRESTOR (ROSUVASTATIN) [Concomitant]
  5. DEXAMETHASONE [Concomitant]
  6. KOMBIQGLYZE XR (ALL OTHER THERAPEUTIC PRODUCTS) [Concomitant]
  7. METOPROLOL SUCCINATE (METOPROLOL SUCCINATE) [Concomitant]
  8. MULTIVITAMINS (MULTIVITAMINS) [Concomitant]
  9. TRIAMTERENE-HCTZ (DYAZIDE) [Concomitant]
  10. VICODIN (VICODIN) [Concomitant]

REACTIONS (1)
  - Ocular hyperaemia [None]
